FAERS Safety Report 5889301-8 (Version None)
Quarter: 2008Q3

REPORT INFORMATION
  Report Type: 
  Country: None (occurrence: None)
  Receive Date: 20080919
  Receipt Date: 20080916
  Transmission Date: 20090109
  Serious: Yes (Life-Threatening)
  Sender: FDA-Public Use
  Company Number: GB-ASTRAZENECA-2008GB01749

PATIENT
  Age: 70 Year
  Sex: Female
  Weight: 70 kg

DRUGS (6)
  1. TAMOXIFEN CITRATE [Suspect]
     Route: 048
     Dates: start: 20060101
  2. AMITRIPTYLINE HCL [Concomitant]
  3. ASPIRIN [Concomitant]
  4. CALCICHEW D3 [Concomitant]
  5. OMEPRAZOLE SODIUM [Concomitant]
  6. PRAVASTATIN SODIUM [Concomitant]

REACTIONS (4)
  - ABASIA [None]
  - ATRIAL FIBRILLATION [None]
  - DEEP VEIN THROMBOSIS [None]
  - MUSCULAR WEAKNESS [None]
